FAERS Safety Report 15578991 (Version 3)
Quarter: 2018Q4

REPORT INFORMATION
  Report Type: Spontaneous
  Country: JP (occurrence: JP)
  Receive Date: 20181102
  Receipt Date: 20181120
  Transmission Date: 20190205
  Serious: Yes (Life-Threatening)
  Sender: FDA-Public Use
  Company Number: JP-PFIZER INC-2018444886

PATIENT
  Age: 44 Year
  Sex: Female

DRUGS (18)
  1. LOXOPROFEN [Interacting]
     Active Substance: LOXOPROFEN
     Indication: LIMBIC ENCEPHALITIS
     Dosage: 60 MG, DAILY
  2. METHYLPREDNISOLONE. [Interacting]
     Active Substance: METHYLPREDNISOLONE
     Indication: LIMBIC ENCEPHALITIS
     Dosage: 1 G, DAILY (FOR 3 DAYS, EVERY WEEK, FOR 4 TIMES)
  3. FENTANYL. [Interacting]
     Active Substance: FENTANYL
     Indication: LIMBIC ENCEPHALITIS
     Dosage: 0.07 MG, UNK (/HR)
  4. RAMELTEON [Interacting]
     Active Substance: RAMELTEON
     Indication: LIMBIC ENCEPHALITIS
     Dosage: 8 MG, DAILY
  5. DEXMEDETOMIDINE HYDROCHLORIDE. [Interacting]
     Active Substance: DEXMEDETOMIDINE HYDROCHLORIDE
     Indication: LIMBIC ENCEPHALITIS
     Dosage: UNK (0.5-0.7 UG/KG/H)
  6. ACYCLOVIR [ACICLOVIR] [Interacting]
     Active Substance: ACYCLOVIR
     Indication: MENINGOENCEPHALITIS HERPETIC
     Dosage: 10 MG/KG, DAILY
  7. AMPICILLIN SODIUM/SULBACTAM SODIUM [Suspect]
     Active Substance: AMPICILLIN SODIUM\SULBACTAM SODIUM
     Indication: LIMBIC ENCEPHALITIS
     Dosage: 3 G, DAILY
  8. ESOMEPRAZOLE. [Interacting]
     Active Substance: ESOMEPRAZOLE MAGNESIUM
     Indication: LIMBIC ENCEPHALITIS
     Dosage: 20 MG, DAILY
  9. PROPOFOL. [Interacting]
     Active Substance: PROPOFOL
     Indication: FOCAL DYSCOGNITIVE SEIZURES
     Dosage: UNK (100-150 MG/H)
  10. SUVOREXANT. [Interacting]
     Active Substance: SUVOREXANT
     Indication: LIMBIC ENCEPHALITIS
     Dosage: 20 MG, DAILY
  11. HUMAN NORMAL IMMUNOGLOBULIN [Interacting]
     Active Substance: HUMAN IMMUNOGLOBULIN G
     Indication: LIMBIC ENCEPHALITIS
     Dosage: UNK, DAILY (0.4 G/KG/DAY FOR 5 DAYS ADDED ON DAY 4)
     Route: 042
  12. EDOXABAN [Interacting]
     Active Substance: EDOXABAN TOSYLATE
     Indication: LIMBIC ENCEPHALITIS
     Dosage: 30 MG, DAILY
  13. LACOSAMIDE. [Interacting]
     Active Substance: LACOSAMIDE
     Indication: FOCAL DYSCOGNITIVE SEIZURES
     Dosage: 100 MG, DAILY
  14. MOSAPRIDE CITRATE [Interacting]
     Active Substance: MOSAPRIDE CITRATE
     Indication: LIMBIC ENCEPHALITIS
     Dosage: 15 MG, DAILY
  15. LEVETIRACETAM. [Interacting]
     Active Substance: LEVETIRACETAM
     Indication: FOCAL DYSCOGNITIVE SEIZURES
     Dosage: 3000 MG, DAILY
  16. QUETIAPINE FUMARATE. [Interacting]
     Active Substance: QUETIAPINE FUMARATE
     Indication: LIMBIC ENCEPHALITIS
     Dosage: UNK (12.5-25MG/DAY)
  17. HALOPERIDOL. [Interacting]
     Active Substance: HALOPERIDOL
     Indication: LIMBIC ENCEPHALITIS
     Dosage: UNK (5-10 MG /DAY)
  18. BROTIZOLAM [Interacting]
     Active Substance: BROTIZOLAM
     Indication: LIMBIC ENCEPHALITIS
     Dosage: 0.25 MG, DAILY

REACTIONS (2)
  - Drug interaction [Recovered/Resolved]
  - Toxic epidermal necrolysis [Recovered/Resolved]
